FAERS Safety Report 20982660 (Version 1)
Quarter: 2022Q2

REPORT INFORMATION
  Report Type: Report from Study
  Country: DE (occurrence: DE)
  Receive Date: 20220620
  Receipt Date: 20220620
  Transmission Date: 20220721
  Serious: Yes (Death, Hospitalization)
  Sender: FDA-Public Use
  Company Number: DE-BAYER-2022A068912

PATIENT
  Age: 53 Year
  Sex: Female

DRUGS (2)
  1. VENTAVIS [Suspect]
     Active Substance: ILOPROST
     Indication: Pulmonary arterial hypertension
     Dosage: UNK UNK, QID
     Route: 055
     Dates: start: 20210204, end: 20220602
  2. VENTAVIS [Suspect]
     Active Substance: ILOPROST
     Indication: Pulmonary arterial hypertension
     Route: 055
     Dates: start: 20210204

REACTIONS (3)
  - Death [Fatal]
  - Intra-abdominal fluid collection [Not Recovered/Not Resolved]
  - Inappropriate schedule of product administration [Unknown]
